FAERS Safety Report 22006002 (Version 1)
Quarter: 2023Q1

REPORT INFORMATION
  Report Type: Report from Study
  Country: GB (occurrence: GB)
  Receive Date: 20230217
  Receipt Date: 20230217
  Transmission Date: 20230418
  Serious: No
  Sender: FDA-Public Use
  Company Number: GB-BRISTOL-MYERS SQUIBB COMPANY-2022-019809

PATIENT
  Age: 65 Year
  Sex: Male
  Weight: 59 kg

DRUGS (1)
  1. FEDRATINIB [Suspect]
     Active Substance: FEDRATINIB
     Indication: Primary myelofibrosis
     Route: 048
     Dates: start: 20201216, end: 20210209

REACTIONS (1)
  - Vitamin B1 decreased [Not Recovered/Not Resolved]

NARRATIVE: CASE EVENT DATE: 20210113
